FAERS Safety Report 10189871 (Version 1)
Quarter: 2014Q2

REPORT INFORMATION
  Report Type: Spontaneous
  Country: US (occurrence: US)
  Receive Date: 20140522
  Receipt Date: 20140522
  Transmission Date: 20141212
  Serious: Yes (Other)
  Sender: FDA-Public Use
  Company Number: US-SANOFI-AVENTIS-2013SA067021

PATIENT
  Age: 66 Year
  Sex: Female

DRUGS (6)
  1. LANTUS SOLOSTAR [Suspect]
     Indication: TYPE 2 DIABETES MELLITUS
     Dosage: PATIENT WAS ON LANTUS FOR ONE DAY. DOSE:40 UNIT(S)
     Route: 065
     Dates: start: 2013
  2. LANTUS SOLOSTAR [Suspect]
     Indication: TYPE 2 DIABETES MELLITUS
     Dosage: PATIENT WAS ON LANTUS FOR ONE DAY. DOSE:40 UNIT(S)
     Route: 065
     Dates: start: 2013
  3. HUMALOG [Suspect]
     Dosage: DOSE:30 UNIT(S)
     Route: 065
  4. NOVOLOG [Suspect]
     Dosage: DOSE:30 UNIT(S)
     Route: 065
  5. SOLOSTAR [Concomitant]
     Indication: TYPE 1 DIABETES MELLITUS
     Dosage: PATIENT WAS ON LANTUS FOR ONE DAY.
  6. SOLOSTAR [Concomitant]
     Indication: TYPE 1 DIABETES MELLITUS
     Dosage: PATIENT WAS ON LANTUS FOR ONE DAY.

REACTIONS (2)
  - Hypoglycaemia [Not Recovered/Not Resolved]
  - Sleep disorder [Unknown]
